FAERS Safety Report 10186148 (Version 3)
Quarter: 2014Q2

REPORT INFORMATION
  Report Type: Spontaneous
  Country: JP (occurrence: JP)
  Receive Date: 20140521
  Receipt Date: 20140618
  Transmission Date: 20141212
  Serious: Yes (Death, Other)
  Sender: FDA-Public Use
  Company Number: JP-PFIZER INC-2014136753

PATIENT
  Age: 87 Year
  Sex: Male

DRUGS (10)
  1. LYRICA [Suspect]
     Indication: HYPOAESTHESIA
     Dosage: 75 MG, 2X/DAY
     Route: 048
     Dates: end: 20140421
  2. LYRICA [Suspect]
     Indication: BACK PAIN
  3. AMLODIPINE BESILATE [Concomitant]
     Indication: HYPERTENSION
     Dosage: 5 MG, 1X/DAY
     Route: 048
     Dates: end: 20140421
  4. BAYASPIRIN [Concomitant]
     Dosage: 100 MG, 1X/DAY
     Route: 048
     Dates: end: 20140421
  5. LANSOPRAZOL [Concomitant]
     Dosage: 15 MG, 1X/DAY
     Route: 048
     Dates: end: 20140421
  6. FLUTORIA [Concomitant]
     Indication: HYPERTENSION
     Dosage: 2 MG, 1X/DAY
     Route: 048
     Dates: end: 20140421
  7. LOSARTAN POTASSIUM [Concomitant]
     Indication: HYPERTENSION
     Dosage: 25 MG, 1X/DAY
     Route: 048
     Dates: end: 20140421
  8. TRAMACET [Concomitant]
     Indication: BACK PAIN
     Dosage: 1 DF, 3X/DAY
     Route: 048
     Dates: end: 20140421
  9. MAG-LAX [Concomitant]
     Indication: CONSTIPATION
     Dosage: 330 MG, 3X/DAY
     Route: 048
     Dates: end: 20140421
  10. TETRAMIDE [Concomitant]
     Indication: INSOMNIA
     Dosage: 10 MG, 1X/DAY
     Route: 048
     Dates: end: 20140421

REACTIONS (4)
  - Pneumonia aspiration [Fatal]
  - General physical health deterioration [Unknown]
  - Dysphagia [Unknown]
  - Gaze palsy [Not Recovered/Not Resolved]
